FAERS Safety Report 6257563-3 (Version None)
Quarter: 2009Q3

REPORT INFORMATION
  Report Type: 
  Country: None (occurrence: None)
  Receive Date: 20090706
  Receipt Date: 20090630
  Transmission Date: 20100115
  Serious: Yes (Death)
  Sender: FDA-Public Use
  Company Number: PHHY2009VE26401

PATIENT
  Age: 47 Year
  Sex: Male

DRUGS (1)
  1. SEBIVO [Suspect]
     Indication: HEPATITIS B
     Dosage: 600 MG DAILY
     Route: 048
     Dates: start: 20070501

REACTIONS (1)
  - HEPATORENAL SYNDROME [None]
